FAERS Safety Report 5765819-3 (Version None)
Quarter: 2008Q2

REPORT INFORMATION
  Report Type: 
  Country: None (occurrence: None)
  Receive Date: 20080611
  Receipt Date: 20080530
  Transmission Date: 20081010
  Serious: Yes (Other)
  Sender: FDA-Public Use
  Company Number: US-PFIZER INC-2008046960

PATIENT
  Sex: Female
  Weight: 102.2 kg

DRUGS (3)
  1. CHANTIX [Suspect]
     Indication: SMOKING CESSATION THERAPY
  2. METFORMIN HCL [Concomitant]
     Indication: DIABETES MELLITUS
  3. PROTONIX [Concomitant]
     Indication: HYPERCHLORHYDRIA

REACTIONS (1)
  - BLOOD GLUCOSE INCREASED [None]
